FAERS Safety Report 5211997-4 (Version None)
Quarter: 2007Q1

REPORT INFORMATION
  Report Type: 
  Country: None (occurrence: None)
  Receive Date: 20070118
  Receipt Date: 20070108
  Transmission Date: 20070707
  Serious: Yes (Hospitalization)
  Sender: FDA-Public Use
  Company Number: FR-GLAXOSMITHKLINE-B0454194A

PATIENT
  Age: 75 Year
  Sex: Male
  Weight: 68 kg

DRUGS (6)
  1. ARIXTRA [Suspect]
     Indication: THROMBOSIS
     Dosage: 7.5MG PER DAY
     Route: 058
     Dates: start: 20060731, end: 20061122
  2. TAXOTERE [Concomitant]
     Dates: start: 20060822
  3. APROVEL [Concomitant]
  4. OMEPRAZOLE [Concomitant]
  5. TEMESTA [Concomitant]
  6. SOLUPRED [Concomitant]

REACTIONS (7)
  - ERYTHEMA [None]
  - HAEMATOMA INFECTION [None]
  - HAEMATURIA [None]
  - INDURATION [None]
  - OEDEMA PERIPHERAL [None]
  - PAIN IN EXTREMITY [None]
  - PURPURA [None]
